FAERS Safety Report 15410247 (Version 1)
Quarter: 2018Q3

REPORT INFORMATION
  Report Type: Spontaneous
  Country: US (occurrence: US)
  Receive Date: 20180921
  Receipt Date: 20180921
  Transmission Date: 20181010
  Serious: No
  Sender: FDA-Public Use
  Company Number: US-SHIRE-US201835771

PATIENT

DRUGS (2)
  1. VYVANSE [Suspect]
     Active Substance: LISDEXAMFETAMINE DIMESYLATE
     Indication: APATHY
  2. VYVANSE [Suspect]
     Active Substance: LISDEXAMFETAMINE DIMESYLATE
     Indication: ASTHENIA
     Dosage: 50 MG, UNK
     Route: 065

REACTIONS (4)
  - Incorrect dose administered [Unknown]
  - Injury [Unknown]
  - Adverse event [Unknown]
  - Product physical issue [Unknown]
